FAERS Safety Report 8400783-X (Version None)
Quarter: 2012Q2

REPORT INFORMATION
  Report Type: 
  Country: None (occurrence: None)
  Receive Date: 20120531
  Receipt Date: 20110630
  Transmission Date: 20120825
  Serious: No
  Sender: FDA-Public Use
  Company Number: US-NOVEN-11US002739

PATIENT
  Sex: Female
  Weight: 47.166 kg

DRUGS (2)
  1. XYZAL [Concomitant]
     Indication: PRODUCT USED FOR UNKNOWN INDICATION
  2. DAYTRANA [Suspect]
     Indication: AUTISM
     Dosage: 10 MG, UNKNOWN
     Route: 062
     Dates: start: 20110601, end: 20110601

REACTIONS (5)
  - OFF LABEL USE [None]
  - PRODUCT QUALITY ISSUE [None]
  - NO ADVERSE EVENT [None]
  - PRODUCT ADHESION ISSUE [None]
  - DRUG PRESCRIBING ERROR [None]
